FAERS Safety Report 26054956 (Version 2)
Quarter: 2025Q4

REPORT INFORMATION
  Report Type: Spontaneous
  Country: US (occurrence: US)
  Receive Date: 20251117
  Receipt Date: 20251219
  Transmission Date: 20260117
  Serious: No
  Sender: SANOFI AVENTIS
  Company Number: US-SA-2025SA338738

PATIENT
  Age: 2 Year
  Sex: Male

DRUGS (4)
  1. ALPROLIX [Suspect]
     Active Substance: EFTRENONACOG ALFA
     Dosage: 2000 U
     Route: 042
  2. ALPROLIX [Suspect]
     Active Substance: EFTRENONACOG ALFA
     Dosage: 2000 U
     Route: 042
  3. ALPROLIX [Suspect]
     Active Substance: EFTRENONACOG ALFA
     Dosage: 1000 U
     Route: 042
  4. ALPROLIX [Suspect]
     Active Substance: EFTRENONACOG ALFA
     Dosage: 1000 U
     Route: 042

REACTIONS (4)
  - Fall [Unknown]
  - Contusion [Recovered/Resolved]
  - Head injury [Unknown]
  - Traumatic haemorrhage [Recovered/Resolved]

NARRATIVE: CASE EVENT DATE: 20251023
